FAERS Safety Report 18767286 (Version 1)
Quarter: 2021Q1

REPORT INFORMATION
  Report Type: Spontaneous
  Country: US (occurrence: US)
  Receive Date: 20210120
  Receipt Date: 20210120
  Transmission Date: 20210419
  Serious: No
  Sender: FDA-Public Use
  Company Number: None

PATIENT
  Sex: Male

DRUGS (1)
  1. STELARA [Suspect]
     Active Substance: USTEKINUMAB
     Indication: CROHN^S DISEASE
     Dosage: OTHER DOSE:UNKNOWN;OTHER FREQUENCY:UNKNOWN;OTHER ROUTE:IV INFUSION?
     Route: 042
     Dates: start: 20210112

REACTIONS (4)
  - Infusion related reaction [None]
  - Rash macular [None]
  - Urticaria [None]
  - Pruritus [None]
